FAERS Safety Report 16805449 (Version 1)
Quarter: 2019Q4

REPORT INFORMATION
  Report Type: Spontaneous
  Country: US (occurrence: US)
  Receive Date: 20190913
  Receipt Date: 20190913
  Transmission Date: 20200122
  Serious: Yes (Hospitalization, Disabling, Other)
  Sender: FDA-Public Use
  Company Number: None

PATIENT
  Age: 69 Year
  Sex: Female
  Weight: 59.4 kg

DRUGS (10)
  1. LISINOPRIL. [Concomitant]
     Active Substance: LISINOPRIL
  2. DAILY MULTIVITAMIN [Concomitant]
     Active Substance: VITAMINS
  3. VITAMIN D [Concomitant]
     Active Substance: VITAMIN D NOS
  4. SAFFRON SUPPLMENT [Concomitant]
  5. AREDS [Concomitant]
     Active Substance: MINERALS\VITAMINS
  6. ONCE MONTHLY IBANDRONATE SODIUM TABLET 150 MG COMMONLY KNOWN AS BONIVA [Suspect]
     Active Substance: IBANDRONATE SODIUM
     Indication: OSTEOPOROSIS
     Dosage: ?          QUANTITY:1 TABLET(S);OTHER FREQUENCY:ONCE MONTHLY;?
     Route: 048
     Dates: start: 20140901, end: 20190201
  7. ATORVASTATIN [Concomitant]
     Active Substance: ATORVASTATIN
  8. TART CHERRY SUPPLEMENT [Concomitant]
  9. CALCIUM [Concomitant]
     Active Substance: CALCIUM
  10. LOW DOSE ASPIRIN [Concomitant]
     Active Substance: ASPIRIN

REACTIONS (5)
  - Arthralgia [None]
  - Fall [None]
  - Pathological fracture [None]
  - Medical device site pain [None]
  - Internal fixation of fracture [None]

NARRATIVE: CASE EVENT DATE: 20190205
